APPROVED DRUG PRODUCT: LEVONORGESTREL AND ETHINYL ESTRADIOL AND ETHINYL ESTRADIOL
Active Ingredient: ETHINYL ESTRADIOL; LEVONORGESTREL
Strength: 0.03MG,0.01MG;0.15MG,N/A
Dosage Form/Route: TABLET;ORAL
Application: A078834 | Product #001 | TE Code: AB
Applicant: DR REDDYS LABORATORIES SA
Approved: May 31, 2011 | RLD: No | RS: No | Type: RX